FAERS Safety Report 9679918 (Version 1)
Quarter: 2013Q4

REPORT INFORMATION
  Report Type: Report from Study
  Country: US (occurrence: US)
  Receive Date: 20131110
  Receipt Date: 20131110
  Transmission Date: 20140711
  Serious: Yes (Hospitalization, Other)
  Sender: FDA-Public Use
  Company Number: PHEH2013US022970

PATIENT
  Age: 61 Year
  Sex: Male
  Weight: 115.65 kg

DRUGS (6)
  1. TASIGNA [Suspect]
     Indication: CHRONIC MYELOID LEUKAEMIA
     Dosage: 150 MG, BID
     Route: 048
     Dates: start: 20120705, end: 20130801
  2. ACTOS [Concomitant]
  3. ATENOLOL [Concomitant]
  4. GLYBURIDE [Concomitant]
  5. NORVASC [Concomitant]
  6. ZOCOR [Concomitant]

REACTIONS (4)
  - Fluid retention [Unknown]
  - Cardiac failure congestive [Unknown]
  - Flatulence [Unknown]
  - Abdominal discomfort [Unknown]
